FAERS Safety Report 14850138 (Version 1)
Quarter: 2018Q2

REPORT INFORMATION
  Report Type: Report from Study
  Country: None (occurrence: GR)
  Receive Date: 20180505
  Receipt Date: 20180505
  Transmission Date: 20180711
  Serious: Yes (Hospitalization)
  Sender: FDA-Public Use
  Company Number: GR-ABBVIE-18K-066-2340059-00

PATIENT
  Age: 85 Year
  Sex: Female
  Weight: 75 kg

DRUGS (2)
  1. MADOPAR [Concomitant]
     Active Substance: BENSERAZIDE HYDROCHLORIDE\LEVODOPA
     Indication: PARKINSON^S DISEASE
     Dosage: 0.25 OF UNKNOWN, FOUR TIMES PER DAY
     Route: 048
     Dates: start: 20180427
  2. DUODOPA [Suspect]
     Active Substance: CARBIDOPA\LEVODOPA
     Indication: PARKINSON^S DISEASE
     Route: 050
     Dates: start: 20100401, end: 20180427

REACTIONS (3)
  - Atelectasis [Not Recovered/Not Resolved]
  - Device dislocation [Unknown]
  - Pneumonia [Not Recovered/Not Resolved]

NARRATIVE: CASE EVENT DATE: 20180331
